FAERS Safety Report 12030195 (Version 1)
Quarter: 2016Q1

REPORT INFORMATION
  Report Type: Report from Study
  Country: US (occurrence: US)
  Receive Date: 20160207
  Receipt Date: 20160207
  Transmission Date: 20160526
  Serious: No
  Sender: FDA-Public Use
  Company Number: US-ABBVIE-15K-163-1505254-00

PATIENT
  Age: 79 Year
  Sex: Female

DRUGS (1)
  1. HUMIRA [Suspect]
     Active Substance: ADALIMUMAB
     Indication: RHEUMATOID ARTHRITIS
     Route: 058
     Dates: start: 201509

REACTIONS (4)
  - Increased appetite [Unknown]
  - Therapeutic response unexpected [Unknown]
  - Injection site rash [Unknown]
  - Rash generalised [Unknown]

NARRATIVE: CASE EVENT DATE: 201509
